FAERS Safety Report 8460475-8 (Version None)
Quarter: 2012Q2

REPORT INFORMATION
  Report Type: 
  Country: None (occurrence: None)
  Receive Date: 20120622
  Receipt Date: 20120618
  Transmission Date: 20120825
  Serious: Yes (Other)
  Sender: FDA-Public Use
  Company Number: US-PFIZER INC-2012147060

PATIENT
  Sex: Female
  Weight: 90.703 kg

DRUGS (6)
  1. ZITHROMAX [Suspect]
     Dosage: 250 MG, 1X/DAY (AFTER TWO DAYS)
     Route: 048
     Dates: start: 20120604, end: 20120606
  2. CODEINE [Concomitant]
     Indication: COUGH
     Dosage: UNK
  3. ZITHROMAX [Suspect]
     Dosage: 250 MG, 2X/DAY (FIRST TWO DAYS)
     Route: 048
     Dates: start: 20110401, end: 20110401
  4. ZITHROMAX [Suspect]
     Dosage: 250 MG, 1X/DAY (AFTER TWO DAYS)
     Route: 048
     Dates: start: 20110401, end: 20110401
  5. ZYRTEC [Concomitant]
     Indication: HYPERSENSITIVITY
     Dosage: UNK
  6. ZITHROMAX [Suspect]
     Dosage: 250 MG, 2X/DAY (FIRST TWO DAYS)
     Route: 048
     Dates: start: 20120604

REACTIONS (3)
  - CHEST PAIN [None]
  - BLOOD PRESSURE INCREASED [None]
  - HEART RATE INCREASED [None]
